FAERS Safety Report 4434293-1 (Version None)
Quarter: 2004Q3

REPORT INFORMATION
  Report Type: 
  Country: None (occurrence: None)
  Receive Date: 20040825
  Receipt Date: 20040812
  Transmission Date: 20050211
  Serious: Yes (Hospitalization, Other)
  Sender: FDA-Public Use
  Company Number: 2004056245

PATIENT
  Age: 45 Year
  Sex: Female

DRUGS (3)
  1. PRODILANTIN (FOSPHENYTOIN SODIUM) [Suspect]
     Indication: STATUS EPILEPTICUS
     Dosage: INTRAVENOUS
     Route: 042
     Dates: start: 20040605, end: 20040609
  2. DILANTIN [Suspect]
     Indication: STATUS EPILEPTICUS
     Dates: start: 20040601
  3. PHENYTOIN SODIUM [Suspect]
     Indication: STATUS EPILEPTICUS
     Dosage: ORAL
     Route: 048
     Dates: start: 20040610, end: 20040621

REACTIONS (20)
  - ALANINE AMINOTRANSFERASE INCREASED [None]
  - ASPARTATE AMINOTRANSFERASE INCREASED [None]
  - BLOOD ALKALINE PHOSPHATASE INCREASED [None]
  - DISEASE RECURRENCE [None]
  - DRUG HYPERSENSITIVITY [None]
  - ECHOCARDIOGRAM ABNORMAL [None]
  - ELECTROENCEPHALOGRAM ABNORMAL [None]
  - EOSINOPHILIC MYOCARDITIS [None]
  - GAMMA-GLUTAMYLTRANSFERASE INCREASED [None]
  - INFLAMMATION [None]
  - LIVER DISORDER [None]
  - LUNG DISORDER [None]
  - LYMPHOPENIA [None]
  - MULTI-ORGAN DISORDER [None]
  - PERICARDIAL EFFUSION [None]
  - PERICARDITIS [None]
  - PROTEINURIA [None]
  - PYREXIA [None]
  - STATUS EPILEPTICUS [None]
  - WHITE BLOOD CELL DISORDER [None]
